FAERS Safety Report 12927707 (Version 1)
Quarter: 2016Q4

REPORT INFORMATION
  Report Type: Spontaneous
  Country: US (occurrence: US)
  Receive Date: 20161110
  Receipt Date: 20161110
  Transmission Date: 20170207
  Serious: Yes (Hospitalization)
  Sender: FDA-Public Use
  Company Number: None

PATIENT
  Age: 60 Year
  Sex: Male
  Weight: 69.5 kg

DRUGS (6)
  1. CYCLOPHOSPHAMIDE. [Suspect]
     Active Substance: CYCLOPHOSPHAMIDE
     Dates: end: 20130805
  2. VINCRISTINE SULFATE. [Suspect]
     Active Substance: VINCRISTINE SULFATE
     Dates: end: 20130803
  3. PREDNISONE. [Concomitant]
     Active Substance: PREDNISONE
     Dates: end: 20130805
  4. ETOPOSIDE (VP-16) [Suspect]
     Active Substance: ETOPOSIDE
     Dates: end: 20130804
  5. DOXORUBICIN HYDROCHLORIDE. [Suspect]
     Active Substance: DOXORUBICIN HYDROCHLORIDE
     Dates: end: 20130804
  6. RITUXIMAB (MOAB C2B8 ANTI CD20, CHIMERIC) [Suspect]
     Active Substance: RITUXIMAB
     Dates: end: 20130731

REACTIONS (13)
  - Hiccups [None]
  - Constipation [None]
  - Abdominal pain [None]
  - Oesophageal ulcer [None]
  - Ileus [None]
  - Nausea [None]
  - Pancreatitis [None]
  - Vomiting [None]
  - Gastric ulcer [None]
  - Hypophagia [None]
  - Duodenal ulcer [None]
  - Fatigue [None]
  - Diffuse large B-cell lymphoma [None]

NARRATIVE: CASE EVENT DATE: 20130903
